FAERS Safety Report 9373074 (Version 4)
Quarter: 2013Q3

REPORT INFORMATION
  Report Type: Spontaneous
  Country: US (occurrence: US)
  Receive Date: 20130627
  Receipt Date: 20130829
  Transmission Date: 20140515
  Serious: Yes (Hospitalization, Other)
  Sender: FDA-Public Use
  Company Number: US-PFIZER INC-2013191672

PATIENT
  Age: 83 Year
  Sex: Female
  Weight: 90 kg

DRUGS (16)
  1. LYRICA [Suspect]
     Indication: PAIN
     Dosage: 100 MG, 2X/DAY
     Route: 048
  2. LYRICA [Suspect]
     Indication: NEUROPATHY PERIPHERAL
  3. PROTONIX [Suspect]
     Indication: ULCER
     Dosage: 40 MG, 1X/DAY
  4. NEURONTIN [Suspect]
     Dosage: UNK
  5. NORVASC [Suspect]
     Dosage: UNK
  6. GLUCOTROL [Suspect]
     Dosage: UNK
  7. CELEBREX [Suspect]
     Dosage: UNK
  8. COREG [Concomitant]
     Indication: CARDIAC DISORDER
     Dosage: 25 MG, 2X/DAY
  9. CYMBALTA [Concomitant]
     Indication: NEUROPATHY PERIPHERAL
     Dosage: 15 MG, 1X/DAY
  10. DIOVAN HCT [Concomitant]
     Indication: CARDIAC DISORDER
     Dosage: 320MG/25 MG, 1X/DAY
  11. METFORMIN [Concomitant]
     Indication: DIABETES MELLITUS
     Dosage: 500 MG, 2X/DAY
  12. ZOCOR [Concomitant]
     Indication: BLOOD CHOLESTEROL ABNORMAL
     Dosage: 20 MG, 1X/DAY
  13. WARFARIN [Concomitant]
     Indication: CARDIAC DISORDER
     Dosage: 25 MG, 1X/DAY
  14. PACERONE [Concomitant]
     Indication: HEART RATE IRREGULAR
     Dosage: 200 MG, 1X/DAY
  15. GLIPIZIDE [Concomitant]
     Dosage: 10 MG, 2X/DAY
  16. VITAMINS [Concomitant]

REACTIONS (2)
  - Breast cancer [Recovering/Resolving]
  - Confusional state [Recovering/Resolving]
